FAERS Safety Report 8820954 (Version 1)
Quarter: 2012Q4

REPORT INFORMATION
  Report Type: Report from Study
  Country: US (occurrence: US)
  Receive Date: 20121002
  Receipt Date: 20121002
  Transmission Date: 20130627
  Serious: Yes (Other)
  Sender: FDA-Public Use
  Company Number: US-ABBOTT-12P-163-0986199-00

PATIENT
  Age: 26 Year
  Sex: Female

DRUGS (3)
  1. HUMIRA [Suspect]
     Indication: CROHN^S DISEASE
     Dates: start: 2008, end: 2010
  2. DICLOFENAC [Concomitant]
     Indication: PRODUCT USED FOR UNKNOWN INDICATION
  3. IBUPROFEN [Concomitant]
     Indication: PAIN

REACTIONS (6)
  - Arthropathy [Unknown]
  - Arthralgia [Unknown]
  - Platelet count increased [Unknown]
  - Vitamin B complex deficiency [Unknown]
  - Bone marrow disorder [Unknown]
  - Inflammation [Not Recovered/Not Resolved]
